FAERS Safety Report 22610571 (Version 1)
Quarter: 2023Q2

REPORT INFORMATION
  Report Type: Spontaneous
  Country: US (occurrence: US)
  Receive Date: 20230616
  Receipt Date: 20230616
  Transmission Date: 20230722
  Serious: Yes (Other)
  Sender: FDA-Public Use
  Company Number: US-TEVA-2023-US-2895717

PATIENT
  Age: 74 Year
  Sex: Male

DRUGS (1)
  1. METOPROLOL SUCCINATE [Suspect]
     Active Substance: METOPROLOL SUCCINATE
     Indication: Hypertension
     Dosage: 15.5 MILLIGRAM DAILY; STRENGTH: 25 MG
     Route: 065

REACTIONS (5)
  - Cardiac flutter [Unknown]
  - Coeliac disease [Unknown]
  - Illness [Unknown]
  - Malaise [Unknown]
  - Product dose omission issue [Unknown]
